FAERS Safety Report 6215964-3 (Version None)
Quarter: 2009Q2

REPORT INFORMATION
  Report Type: 
  Country: None (occurrence: None)
  Receive Date: 20090605
  Receipt Date: 20090527
  Transmission Date: 20091009
  Serious: Yes (Death, Other)
  Sender: FDA-Public Use
  Company Number: IT-BAYER-200922030GPV

PATIENT
  Age: 53 Year
  Sex: Male

DRUGS (3)
  1. MABCAMPATH [Suspect]
     Indication: CHRONIC LYMPHOCYTIC LEUKAEMIA
     Dosage: AS USED: 30 MG/M2
     Route: 065
     Dates: start: 20070601, end: 20070701
  2. FLUDARABINE PHOSPHATE [Suspect]
     Indication: CHRONIC LYMPHOCYTIC LEUKAEMIA
     Dosage: SIX CYCLES FCR
     Route: 065
     Dates: start: 20051201
  3. FLUDARABINE PHOSPHATE [Suspect]
     Dosage: AS USED: 25 MG/M2
     Route: 065
     Dates: start: 20070101, end: 20070101

REACTIONS (3)
  - B-CELL LYMPHOMA STAGE IV [None]
  - CYTOMEGALOVIRUS INFECTION [None]
  - MULTI-ORGAN FAILURE [None]
